FAERS Safety Report 8337794-9 (Version None)
Quarter: 2012Q2

REPORT INFORMATION
  Report Type: 
  Country: None (occurrence: None)
  Receive Date: 20120504
  Receipt Date: 20120426
  Transmission Date: 20120825
  Serious: Yes (Other)
  Sender: FDA-Public Use
  Company Number: US-GLAXOSMITHKLINE-A0976184A

PATIENT
  Sex: Female

DRUGS (3)
  1. VALACYCLOVIR HYDROCHLORIDE [Suspect]
     Indication: HERPES VIRUS INFECTION
     Route: 065
  2. LIALDA [Concomitant]
     Indication: COLITIS ULCERATIVE
  3. SYNTHROID [Concomitant]

REACTIONS (4)
  - COLITIS ULCERATIVE [None]
  - NAUSEA [None]
  - DRUG INTOLERANCE [None]
  - DIZZINESS [None]
